FAERS Safety Report 8272618-X (Version None)
Quarter: 2012Q2

REPORT INFORMATION
  Report Type: 
  Country: None (occurrence: None)
  Receive Date: 20120410
  Receipt Date: 20111205
  Transmission Date: 20120825
  Serious: Yes (Death)
  Sender: FDA-Public Use
  Company Number: PHHY2011US108203

PATIENT
  Age: 49 Year
  Sex: Female

DRUGS (3)
  1. ETHANOL [Suspect]
  2. SERTRALINE HYDROCHLORIDE [Suspect]
     Route: 048
  3. METOPROLOL TARTRATE [Suspect]
     Route: 048

REACTIONS (1)
  - COMPLETED SUICIDE [None]
